FAERS Safety Report 5266528-X (Version None)
Quarter: 2007Q1

REPORT INFORMATION
  Report Type: 
  Country: None (occurrence: None)
  Receive Date: 20070315
  Receipt Date: 20070308
  Transmission Date: 20070707
  Serious: Yes (Hospitalization)
  Sender: FDA-Public Use
  Company Number: IN-ROXANE LABORATORIES, INC-2007-BP-03201RO

PATIENT
  Age: 23 Year
  Sex: Male

DRUGS (4)
  1. LITHIUM CARBONATE [Suspect]
     Indication: MOOD ALTERED
     Route: 048
  2. CARBAMAZEPINE [Suspect]
     Indication: MANIA
     Dosage: 900 MG/DAY
     Route: 048
  3. OLANZAPINE [Suspect]
     Indication: MANIA
     Dosage: 15 MG/DAY
     Route: 048
  4. OLANZAPINE [Suspect]
     Dosage: 10 MG/DAY
     Route: 048

REACTIONS (7)
  - CONJUNCTIVITIS [None]
  - MANIA [None]
  - MOUTH ULCERATION [None]
  - PHARYNGOLARYNGEAL PAIN [None]
  - PYREXIA [None]
  - RASH ERYTHEMATOUS [None]
  - STEVENS-JOHNSON SYNDROME [None]
